FAERS Safety Report 15942858 (Version 1)
Quarter: 2019Q1

REPORT INFORMATION
  Report Type: Spontaneous
  Country: US (occurrence: US)
  Receive Date: 20190209
  Receipt Date: 20190209
  Transmission Date: 20190417
  Serious: No
  Sender: FDA-Public Use
  Company Number: US-BAUSCH-BL-2018-017224

PATIENT
  Sex: Female

DRUGS (1)
  1. NEOMYCIN AND POLYMYXIN B SULFATES AND HYDROCORTISONE OTIC SOLUTION [Suspect]
     Active Substance: HYDROCORTISONE\NEOMYCIN SULFATE\POLYMYXIN B SULFATE
     Indication: OTITIS EXTERNA
     Route: 050
     Dates: start: 20180406

REACTIONS (5)
  - Drug effect incomplete [None]
  - Erythema [None]
  - Incorrect product administration duration [Unknown]
  - Ear infection fungal [Not Recovered/Not Resolved]
  - Pruritus [None]

NARRATIVE: CASE EVENT DATE: 201804
